FAERS Safety Report 10635974 (Version 1)
Quarter: 2014Q4

REPORT INFORMATION
  Report Type: Spontaneous
  Country: US (occurrence: US)
  Receive Date: 20141205
  Receipt Date: 20141205
  Transmission Date: 20150529
  Serious: No
  Sender: FDA-Public Use
  Company Number: US-BAYER-2014-179614

PATIENT
  Age: 78 Year
  Sex: Female
  Weight: 91 kg

DRUGS (4)
  1. ALEVE PM [Suspect]
     Active Substance: DIPHENHYDRAMINE HYDROCHLORIDE\NAPROXEN SODIUM
     Indication: SLEEP DISORDER THERAPY
     Dosage: 2 DF, PRN
     Route: 048
     Dates: start: 201411, end: 20141202
  2. LIPITOR [Concomitant]
     Active Substance: ATORVASTATIN CALCIUM
  3. DIOVAN [Concomitant]
     Active Substance: VALSARTAN
  4. PREMARIN [ESTROGENS CONJUGATED] [Concomitant]

REACTIONS (2)
  - Somnolence [Recovered/Resolved]
  - Medication error [Unknown]

NARRATIVE: CASE EVENT DATE: 201411
